FAERS Safety Report 8708207 (Version 2)
Quarter: 2012Q4

REPORT INFORMATION
  Report Type: Report from Study
  Country: DE (occurrence: DE)
  Receive Date: 20120806
  Receipt Date: 20121123
  Transmission Date: 20130627
  Serious: No
  Sender: FDA-Public Use
  Company Number: PHHY2012DE066425

PATIENT
  Sex: Male

DRUGS (4)
  1. AMN107 [Suspect]
     Dosage: 800 mg, daily
     Route: 048
  2. OMNIC [Concomitant]
  3. PANTOZOL [Concomitant]
     Dates: start: 20110324
  4. LEVOFLOXACIN [Concomitant]
     Dates: start: 201206, end: 201206

REACTIONS (2)
  - Foreign body sensation in eyes [Not Recovered/Not Resolved]
  - Photopsia [Not Recovered/Not Resolved]
